FAERS Safety Report 5913741-1 (Version None)
Quarter: 2008Q4

REPORT INFORMATION
  Report Type: 
  Country: None (occurrence: None)
  Receive Date: 20081007
  Receipt Date: 20080930
  Transmission Date: 20090506
  Serious: Yes (Congenital Anomaly)
  Sender: FDA-Public Use
  Company Number: 100#08#2008-04769

PATIENT

DRUGS (3)
  1. CARBAMAZEPINE [Suspect]
     Indication: DRUG EXPOSURE DURING PREGNANCY
     Dosage: APP. 650 MG, TRANSPLACENTAL
     Route: 064
  2. PHENOBARBITAL TAB [Suspect]
     Indication: DRUG EXPOSURE DURING PREGNANCY
     Dosage: APP. 130 MG, TRANSPLACENTAL
     Route: 064
  3. FOLIC ACID [Concomitant]

REACTIONS (5)
  - CONGENITAL CYSTIC KIDNEY DISEASE [None]
  - DYSMORPHISM [None]
  - HYPERTELORISM OF ORBIT [None]
  - MATERNAL DRUGS AFFECTING FOETUS [None]
  - PROMINENT EPICANTHAL FOLDS [None]
